FAERS Safety Report 15308607 (Version 1)
Quarter: 2018Q3

REPORT INFORMATION
  Report Type: Spontaneous
  Country: US (occurrence: US)
  Receive Date: 20180822
  Receipt Date: 20180822
  Transmission Date: 20181010
  Serious: No
  Sender: FDA-Public Use
  Company Number: US-009507513-1808USA009226

PATIENT
  Sex: Female

DRUGS (1)
  1. NEXPLANON [Suspect]
     Active Substance: ETONOGESTREL
     Indication: CONTRACEPTION
     Dosage: 3 ROD IMPLANTED OVER A SEVERAL YEARS
     Route: 059

REACTIONS (3)
  - Complication of device removal [Recovered/Resolved]
  - Implant site fibrosis [Unknown]
  - Menstruation irregular [Unknown]
